FAERS Safety Report 18261653 (Version 1)
Quarter: 2020Q3

REPORT INFORMATION
  Report Type: Spontaneous
  Country: US (occurrence: US)
  Receive Date: 20200911
  Receipt Date: 20200911
  Transmission Date: 20201103
  Serious: Yes (Hospitalization)
  Sender: FDA-Public Use
  Company Number: None

PATIENT
  Age: 59 Year
  Sex: Male
  Weight: 89.1 kg

DRUGS (1)
  1. ATORVASTATIN 40MG TABLET [Suspect]
     Active Substance: ATORVASTATIN
     Indication: BLOOD CHOLESTEROL
     Route: 048
     Dates: start: 20200821, end: 20200824

REACTIONS (6)
  - Anxiety [None]
  - Skin exfoliation [None]
  - Pain in extremity [None]
  - Stress [None]
  - Emotional disorder [None]
  - Gait disturbance [None]

NARRATIVE: CASE EVENT DATE: 20200823
